FAERS Safety Report 13402270 (Version 1)
Quarter: 2017Q2

REPORT INFORMATION
  Report Type: Spontaneous
  Country: US (occurrence: US)
  Receive Date: 20170404
  Receipt Date: 20170404
  Transmission Date: 20170830
  Serious: Yes (Other)
  Sender: FDA-Public Use
  Company Number: US-BAYER-2017-058943

PATIENT
  Sex: Female

DRUGS (1)
  1. ALEVE [Suspect]
     Active Substance: NAPROXEN SODIUM
     Dosage: UNK, ONCE
     Route: 048

REACTIONS (5)
  - Loss of consciousness [None]
  - Generalised erythema [None]
  - Drug hypersensitivity [None]
  - Respiratory arrest [None]
  - Feeling abnormal [None]
